FAERS Safety Report 18144838 (Version 1)
Quarter: 2020Q3

REPORT INFORMATION
  Report Type: Spontaneous
  Country: US (occurrence: US)
  Receive Date: 20200813
  Receipt Date: 20200813
  Transmission Date: 20201103
  Serious: Yes (Other)
  Sender: FDA-Public Use
  Company Number: US-SA-2020SA207678

PATIENT

DRUGS (2)
  1. RANITIDINE. [Suspect]
     Active Substance: RANITIDINE
     Indication: GASTRIC MUCOSAL LESION
     Dosage: 300 MG
     Dates: start: 2017
  2. ZANTAC [Suspect]
     Active Substance: RANITIDINE HYDROCHLORIDE
     Dosage: 150 MG, TWENTY (20) TXO THIRTY (30) TIMES PER MONTH

REACTIONS (6)
  - Anxiety [Unknown]
  - Gastric disorder [Unknown]
  - Malaise [Unknown]
  - Gastric cancer stage III [Unknown]
  - Carcinogenicity [Unknown]
  - Injury [Unknown]

NARRATIVE: CASE EVENT DATE: 201707
